FAERS Safety Report 15479549 (Version 1)
Quarter: 2018Q4

REPORT INFORMATION
  Report Type: Report from Study
  Country: CA (occurrence: CA)
  Receive Date: 20181009
  Receipt Date: 20181009
  Transmission Date: 20190205
  Serious: Yes (Other)
  Sender: FDA-Public Use
  Company Number: CA-JNJFOC-20181006448

PATIENT
  Age: 46 Year
  Sex: Male
  Weight: 86.9 kg

DRUGS (1)
  1. REMICADE [Suspect]
     Active Substance: INFLIXIMAB
     Indication: COLITIS ULCERATIVE
     Dosage: STRENGTH = 100 MG
     Route: 042
     Dates: start: 20160809

REACTIONS (3)
  - Product use issue [Unknown]
  - Off label use [Unknown]
  - Salmonellosis [Recovered/Resolved]

NARRATIVE: CASE EVENT DATE: 20160809
